FAERS Safety Report 5304984-9 (Version None)
Quarter: 2007Q2

REPORT INFORMATION
  Report Type: 
  Country: None (occurrence: None)
  Receive Date: 20070423
  Receipt Date: 20070320
  Transmission Date: 20071010
  Serious: Yes (Hospitalization, Disabling, Other)
  Sender: FDA-Public Use
  Company Number: US-PFIZER INC-2007022731

PATIENT
  Sex: Female
  Weight: 102.1 kg

DRUGS (2)
  1. CELEBREX [Suspect]
     Indication: SCIATICA
  2. BEXTRA [Suspect]
     Indication: SCIATICA
     Dates: start: 20040816

REACTIONS (4)
  - ANXIETY [None]
  - DEPRESSION [None]
  - MYOCARDIAL INFARCTION [None]
  - STEVENS-JOHNSON SYNDROME [None]
